FAERS Safety Report 7196580-6 (Version None)
Quarter: 2010Q4

REPORT INFORMATION
  Report Type: 
  Country: None (occurrence: None)
  Receive Date: 20101223
  Receipt Date: 20101027
  Transmission Date: 20110411
  Serious: No
  Sender: FDA-Public Use
  Company Number: US-AMGEN-USASP2010002101

PATIENT

DRUGS (3)
  1. ENBREL [Suspect]
     Indication: PSORIATIC ARTHROPATHY
     Dosage: 50 MG, UNK
  2. PREDNISONE [Concomitant]
  3. TOPIRAMATE [Concomitant]

REACTIONS (2)
  - INJECTION SITE HAEMATOMA [None]
  - SINUSITIS [None]
